FAERS Safety Report 6510666-8 (Version None)
Quarter: 2009Q4

REPORT INFORMATION
  Report Type: 
  Country: None (occurrence: None)
  Receive Date: 20091222
  Receipt Date: 20091014
  Transmission Date: 20100525
  Serious: No
  Sender: FDA-Public Use
  Company Number: US-ASTRAZENECA-2009SE20167

PATIENT
  Age: 65 Year
  Sex: Female
  Weight: 71.7 kg

DRUGS (2)
  1. CRESTOR [Suspect]
     Indication: BLOOD CHOLESTEROL INCREASED
     Route: 048
     Dates: start: 20091009, end: 20091013
  2. MEDICATION FOR HYPERTENSION [Concomitant]
     Indication: HYPERTENSION

REACTIONS (1)
  - PAIN IN EXTREMITY [None]
